FAERS Safety Report 8840378 (Version 1)
Quarter: 2012Q4

REPORT INFORMATION
  Report Type: 
  Country: US (occurrence: US)
  Receive Date: 20121015
  Receipt Date: 20121015
  Transmission Date: 20130627
  Serious: Yes (Other)
  Sender: FDA-Public Use
  Company Number: US-ROCHE-1136473

PATIENT
  Sex: Female

DRUGS (3)
  1. NUTROPIN [Suspect]
     Indication: PRODUCT USED FOR UNKNOWN INDICATION
     Route: 065
     Dates: start: 20000831
  2. LITHIUM [Suspect]
     Indication: PRODUCT USED FOR UNKNOWN INDICATION
     Route: 065
  3. LUPRON [Concomitant]
     Indication: GROWTH HORMONE DEFICIENCY
     Route: 065

REACTIONS (5)
  - Nephrogenic diabetes insipidus [Recovering/Resolving]
  - Ear infection [Unknown]
  - Enuresis [Recovering/Resolving]
  - Oral viral infection [Unknown]
  - Weight increased [Unknown]
